FAERS Safety Report 7979020-6 (Version None)
Quarter: 2011Q4

REPORT INFORMATION
  Report Type: 
  Country: None (occurrence: None)
  Receive Date: 20111202
  Receipt Date: 20111123
  Transmission Date: 20120403
  Serious: Yes (Hospitalization, Other)
  Sender: FDA-Public Use
  Company Number: 2010SP062381

PATIENT
  Age: 33 Year
  Sex: Female
  Weight: 117.9352 kg

DRUGS (2)
  1. ZOLOFT [Concomitant]
  2. NUVARING [Suspect]
     Indication: CONTRACEPTION
     Dates: start: 20070101, end: 20080717

REACTIONS (12)
  - ABORTION INDUCED [None]
  - HYDROURETER [None]
  - HEADACHE [None]
  - THROMBOPHLEBITIS SUPERFICIAL [None]
  - FATIGUE [None]
  - MYALGIA [None]
  - HAEMORRHAGE [None]
  - ABORTION INCOMPLETE [None]
  - PULMONARY EMBOLISM [None]
  - VENOUS THROMBOSIS [None]
  - RETAINED PLACENTA OR MEMBRANES [None]
  - NEPHROTIC SYNDROME [None]
